FAERS Safety Report 5331296-X (Version None)
Quarter: 2007Q2

REPORT INFORMATION
  Report Type: 
  Country: None (occurrence: None)
  Receive Date: 20070301
  Receipt Date: 20060615
  Transmission Date: 20071010
  Serious: Yes (Other)
  Sender: FDA-Public Use
  Company Number: 2645

PATIENT
  Age: 19 Year
  Sex: Male

DRUGS (7)
  1. AMNESTEEM [Suspect]
     Indication: ACNE CYSTIC
     Dosage: 20 MG QHM, 40 MG QPM PO
     Route: 048
     Dates: start: 20060414, end: 20060608
  2. LITHIUM CARBONATE ER [Concomitant]
  3. LORAZEPAM [Concomitant]
  4. ACETYLSALICYLIC ACID SRT [Concomitant]
  5. FLUOXETINE [Concomitant]
  6. CLOMIPRAMINE HCL [Concomitant]
  7. MIRTAZAPINE [Concomitant]

REACTIONS (2)
  - ALANINE AMINOTRANSFERASE INCREASED [None]
  - ASPARTATE AMINOTRANSFERASE INCREASED [None]
